FAERS Safety Report 25248318 (Version 1)
Quarter: 2025Q2

REPORT INFORMATION
  Report Type: Spontaneous
  Country: US (occurrence: US)
  Receive Date: 20250429
  Receipt Date: 20250429
  Transmission Date: 20250716
  Serious: No
  Sender: NOVAST LABORATORIES LTD
  Company Number: US-NOVAST LABORATORIES INC.-2024NOV000330

PATIENT

DRUGS (1)
  1. NEW DAY [Suspect]
     Active Substance: LEVONORGESTREL
     Indication: Post coital contraception
     Route: 065
     Dates: start: 20241115

REACTIONS (2)
  - Dysmenorrhoea [Recovered/Resolved]
  - Heavy menstrual bleeding [Recovered/Resolved]

NARRATIVE: CASE EVENT DATE: 20241121
